FAERS Safety Report 24707825 (Version 6)
Quarter: 2025Q1

REPORT INFORMATION
  Report Type: Spontaneous
  Country: US (occurrence: US)
  Receive Date: 20241206
  Receipt Date: 20250218
  Transmission Date: 20250408
  Serious: Yes (Other)
  Sender: BLUEPRINT MEDICINES
  Company Number: US-Blueprint Medicines Corporation-5504

PATIENT
  Age: 73 Year
  Sex: Female

DRUGS (2)
  1. AYVAKIT [Suspect]
     Active Substance: AVAPRITINIB
     Indication: Haematopoietic neoplasm
     Route: 048
     Dates: start: 20241120
  2. AYVAKIT [Suspect]
     Active Substance: AVAPRITINIB
     Route: 048
     Dates: start: 20241120

REACTIONS (14)
  - Immunodeficiency [Unknown]
  - Nerve injury [Unknown]
  - Pain in extremity [Unknown]
  - Bone pain [Not Recovered/Not Resolved]
  - Decreased appetite [Not Recovered/Not Resolved]
  - Myalgia [Unknown]
  - Urinary tract infection [Unknown]
  - Infection [Unknown]
  - Asthenia [Unknown]
  - Malaise [Unknown]
  - Gastrointestinal infection [Unknown]
  - Back pain [Unknown]
  - Gait inability [Unknown]
  - Nerve compression [Unknown]
